FAERS Safety Report 7940406-7 (Version None)
Quarter: 2011Q4

REPORT INFORMATION
  Report Type: 
  Country: None (occurrence: None)
  Receive Date: 20111127
  Receipt Date: 20111116
  Transmission Date: 20120403
  Serious: Yes (Hospitalization, Other)
  Sender: FDA-Public Use
  Company Number: US-ELI_LILLY_AND_COMPANY-US200912004441

PATIENT
  Sex: Male

DRUGS (19)
  1. SENNA SPP. [Concomitant]
  2. CALCIUM PLUS D3 [Concomitant]
  3. FORTEO [Suspect]
     Indication: OSTEOPOROSIS
     Dosage: 20 UG, QD
     Dates: start: 20091209
  4. VALSARTAN [Concomitant]
  5. CRESTOR [Concomitant]
  6. ZETIA [Concomitant]
  7. MULTI-VITAMIN [Concomitant]
  8. OXYBUTYNIN CHLORIDE [Concomitant]
  9. MYSOLINE [Concomitant]
  10. LOVAZA [Concomitant]
  11. FORTEO [Suspect]
     Dosage: 20 UG, QD
  12. PRILOSEC [Concomitant]
  13. CARVEDIL [Concomitant]
  14. XALATAN [Concomitant]
  15. TYLENOL (CAPLET) [Concomitant]
  16. FORTEO [Suspect]
     Dosage: 20 UG, QD
  17. FORTEO [Suspect]
     Dosage: 20 UG, QD
     Route: 065
  18. ASPIRIN [Concomitant]
     Dosage: UNK, UNKNOWN
  19. VITAMIN D [Concomitant]

REACTIONS (16)
  - VIRAL INFECTION [None]
  - DIARRHOEA [None]
  - URINARY TRACT OBSTRUCTION [None]
  - ANXIETY [None]
  - INJECTION SITE ERYTHEMA [None]
  - INTENTIONAL OVERDOSE [None]
  - MOVEMENT DISORDER [None]
  - INJECTION SITE PAIN [None]
  - HICCUPS [None]
  - CALCULUS URINARY [None]
  - URINE FLOW DECREASED [None]
  - PAIN IN EXTREMITY [None]
  - MUSCLE DISORDER [None]
  - MYALGIA [None]
  - OVERDOSE [None]
  - ARTHRITIS [None]
